FAERS Safety Report 15308528 (Version 3)
Quarter: 2018Q3

REPORT INFORMATION
  Report Type: Spontaneous
  Country: GB (occurrence: GB)
  Receive Date: 20180822
  Receipt Date: 20180913
  Transmission Date: 20181010
  Serious: Yes (Hospitalization)
  Sender: FDA-Public Use
  Company Number: GB-NOVOPROD-617005

PATIENT
  Age: 88 Year

DRUGS (1)
  1. NOVORAPID [Suspect]
     Active Substance: INSULIN ASPART
     Indication: PRODUCT USED FOR UNKNOWN INDICATION
     Dosage: UNK
     Route: 065

REACTIONS (4)
  - Urine ketone body present [Unknown]
  - Device issue [Unknown]
  - Incorrect dose administered by device [Unknown]
  - Malaise [Unknown]

NARRATIVE: CASE EVENT DATE: 20180417
